FAERS Safety Report 11858639 (Version 2)
Quarter: 2016Q2

REPORT INFORMATION
  Report Type: Spontaneous
  Country: FR (occurrence: FR)
  Receive Date: 20151222
  Receipt Date: 20160518
  Transmission Date: 20160815
  Serious: Yes (Other)
  Sender: FDA-Public Use
  Company Number: FR-009507513-1512FRA010064

PATIENT
  Age: 62 Year
  Sex: Male

DRUGS (10)
  1. JANUMET [Suspect]
     Active Substance: METFORMIN HYDROCHLORIDE\SITAGLIPTIN PHOSPHATE
     Dosage: 1 DF, BID
     Dates: start: 20110708, end: 20120110
  2. PERINDOPRIL [Concomitant]
     Active Substance: PERINDOPRIL
     Dosage: UNK
  3. XYZALL [Concomitant]
     Active Substance: LEVOCETIRIZINE DIHYDROCHLORIDE
     Dosage: UNK
  4. SIMVASTATIN. [Concomitant]
     Active Substance: SIMVASTATIN
     Dosage: UNK
  5. TANAKAN [Concomitant]
     Active Substance: GINKGO
     Dosage: UNK
  6. YSOMEGA [Concomitant]
     Dosage: UNK
  7. KARDEGIC [Concomitant]
     Active Substance: ASPIRIN LYSINE
     Dosage: UNK
  8. VENLAFAXINE HYDROCHLORIDE. [Concomitant]
     Active Substance: VENLAFAXINE HYDROCHLORIDE
     Dosage: UNK
  9. DIAMICRON [Concomitant]
     Active Substance: GLICLAZIDE
     Dosage: UNK
  10. OKIMUS [Concomitant]
     Active Substance: HAWTHORN LEAF WITH FLOWER\QUININE
     Dosage: UNK

REACTIONS (1)
  - Pancreatic carcinoma [Unknown]

NARRATIVE: CASE EVENT DATE: 20140820
